FAERS Safety Report 13150413 (Version 1)
Quarter: 2017Q1

REPORT INFORMATION
  Report Type: Spontaneous
  Country: US (occurrence: US)
  Receive Date: 20170125
  Receipt Date: 20170125
  Transmission Date: 20170428
  Serious: No
  Sender: FDA-Public Use
  Company Number: US-PFIZER INC-2017028594

PATIENT
  Age: 78 Year
  Sex: Female
  Weight: 54 kg

DRUGS (6)
  1. ELMIRON [Concomitant]
     Active Substance: PENTOSAN POLYSULFATE SODIUM
     Indication: CYSTITIS INTERSTITIAL
     Dosage: 400 MG, DAILY
  2. EVISTA [Concomitant]
     Active Substance: RALOXIFENE HYDROCHLORIDE
     Indication: MACULAR DEGENERATION
     Dosage: UNK, ^EVERY 8 WEEKS^
     Route: 031
  3. KERYDIN [Suspect]
     Active Substance: TAVABOROLE
     Indication: ONYCHOMYCOSIS
     Dosage: ^ONE-THIRD OF A DROPPER, LIQUID, ON THE TOE THAT WAS AFFECTED, 1X/DAY IN THE EVENING
     Dates: start: 201612
  4. VITAMIN D /00107901/ [Concomitant]
     Active Substance: ERGOCALCIFEROL
     Indication: VITAMIN D DECREASED
     Dosage: 50000 IU, MONTHLY
  5. GARLIC /01570501/ [Concomitant]
     Active Substance: GARLIC
     Indication: SUPPLEMENTATION THERAPY
     Dosage: 1000 MG, UNK
  6. FISH OIL [Concomitant]
     Active Substance: FISH OIL
     Indication: SUPPLEMENTATION THERAPY
     Dosage: 1000 MG, DAILY

REACTIONS (6)
  - Erythema [Unknown]
  - Drug ineffective [Unknown]
  - Peripheral swelling [Unknown]
  - Skin exfoliation [Unknown]
  - Nail disorder [Unknown]
  - Pain [Unknown]

NARRATIVE: CASE EVENT DATE: 201701
